FAERS Safety Report 18847972 (Version 3)
Quarter: 2021Q1

REPORT INFORMATION
  Report Type: Spontaneous
  Country: TT (occurrence: TT)
  Receive Date: 20210204
  Receipt Date: 20210218
  Transmission Date: 20210419
  Serious: Yes (Other)
  Sender: FDA-Public Use
  Company Number: TT-GLAXOSMITHKLINE-TT2021AMR020778

PATIENT
  Age: 31 Year
  Sex: Female

DRUGS (1)
  1. VENTOLIN [Suspect]
     Active Substance: ALBUTEROL SULFATE
     Indication: PRODUCT USED FOR UNKNOWN INDICATION
     Dosage: UNK

REACTIONS (3)
  - Speech disorder [Recovered/Resolved]
  - Dystonia [Recovered/Resolved]
  - Aphasia [Recovered/Resolved]
